FAERS Safety Report 10087154 (Version 1)
Quarter: 2014Q2

REPORT INFORMATION
  Report Type: Spontaneous
  Country: GB (occurrence: GB)
  Receive Date: 20140418
  Receipt Date: 20140418
  Transmission Date: 20141212
  Serious: Yes (Life-Threatening, Hospitalization, Other)
  Sender: FDA-Public Use
  Company Number: GB-PFIZER INC-2014108384

PATIENT
  Age: 84 Year
  Sex: Female

DRUGS (18)
  1. RAMIPRIL [Suspect]
     Indication: ANGIOPATHY
     Dosage: 5 MG, 2X/DAY
     Route: 048
     Dates: end: 20140312
  2. METFORMIN HCL [Suspect]
     Dosage: 1 G, 2X/DAY
     Route: 065
  3. CALCIUM CARBONATE [Suspect]
     Indication: OSTEOPOROSIS
     Dosage: 1 DF, DAILY
     Route: 048
     Dates: end: 20140312
  4. GLICLAZIDE [Suspect]
     Indication: TYPE 2 DIABETES MELLITUS
     Dosage: 80 MG, 2X/DAY
     Route: 048
  5. TRIMETHOPRIM [Suspect]
     Indication: URINARY TRACT INFECTION
     Dosage: 200 MG, 2X/DAY
     Route: 048
     Dates: start: 20140306, end: 20140312
  6. ALENDRONIC ACID [Concomitant]
  7. ALVERINE CITRATE [Concomitant]
  8. ASPIRIN [Concomitant]
  9. BRINZOLAMIDE [Concomitant]
  10. FERROUS FUMARATE [Concomitant]
     Dosage: UNK
     Dates: start: 20140221
  11. GAVISCON ADVANCE [Concomitant]
     Dosage: UNK
     Dates: start: 20140310
  12. LAXIDO [Concomitant]
  13. METOCLOPRAMIDE [Concomitant]
     Dosage: UNK
     Dates: start: 20140310
  14. PIOGLITAZONE HYDROCHLORIDE [Concomitant]
  15. QUININE SULPHATE [Concomitant]
  16. SALBUTAMOL [Concomitant]
  17. SIMVASTATIN [Concomitant]
  18. ZAPAIN [Concomitant]

REACTIONS (6)
  - Hypercalcaemia [Recovered/Resolved]
  - Renal failure acute [Recovered/Resolved]
  - Hyperkalaemia [Recovered/Resolved]
  - Hypoglycaemia [Recovered/Resolved]
  - Abdominal pain lower [Recovered/Resolved]
  - Nausea [Recovered/Resolved]
